FAERS Safety Report 7915491-9 (Version None)
Quarter: 2011Q4

REPORT INFORMATION
  Report Type: 
  Country: None (occurrence: None)
  Receive Date: 20111115
  Receipt Date: 20111111
  Transmission Date: 20120403
  Serious: Yes (Disabling)
  Sender: FDA-Public Use
  Company Number: CZ-ABBOTT-05P-217-0286413-00

PATIENT
  Sex: Female
  Weight: 69 kg

DRUGS (4)
  1. HUMIRA [Suspect]
     Indication: RHEUMATOID ARTHRITIS
     Route: 058
     Dates: start: 20040831, end: 20041123
  2. IBUPROFEN [Concomitant]
     Indication: ARTHRALGIA
     Route: 048
     Dates: start: 20041129
  3. MEDROL [Concomitant]
     Indication: RHEUMATOID ARTHRITIS
     Route: 048
     Dates: start: 20031125
  4. DETRALEX [Concomitant]
     Indication: THROMBOSIS PROPHYLAXIS
     Route: 048
     Dates: start: 20041129

REACTIONS (1)
  - PHLEBITIS [None]
